FAERS Safety Report 5252440-9 (Version None)
Quarter: 2007Q1

REPORT INFORMATION
  Report Type: 
  Country: None (occurrence: None)
  Receive Date: 20070301
  Receipt Date: 20061110
  Transmission Date: 20070707
  Serious: Yes (Hospitalization, Other)
  Sender: FDA-Public Use
  Company Number: US-BRISTOL-MYERS SQUIBB COMPANY-13575238

PATIENT
  Sex: Male

DRUGS (4)
  1. ERBITUX [Suspect]
     Indication: TONGUE NEOPLASM MALIGNANT STAGE UNSPECIFIED
     Dates: start: 20061012
  2. TYLENOL [Concomitant]
     Indication: PREMEDICATION
     Dates: start: 20061012
  3. BENADRYL [Concomitant]
     Indication: PREMEDICATION
     Dates: start: 20061012
  4. SOLU-MEDROL [Concomitant]
     Indication: PREMEDICATION
     Dates: start: 20061012

REACTIONS (2)
  - PRURITUS [None]
  - RESPIRATORY ARREST [None]
